FAERS Safety Report 6784717-X (Version None)
Quarter: 2010Q2

REPORT INFORMATION
  Report Type: 
  Country: None (occurrence: None)
  Receive Date: 20100622
  Receipt Date: 20100611
  Transmission Date: 20101027
  Serious: Yes (Other)
  Sender: FDA-Public Use
  Company Number: US-JNJCH-2010011818

PATIENT
  Age: 22 Month
  Sex: Male
  Weight: 10.4 kg

DRUGS (1)
  1. CHILDREN'S BENADRYL ALLERGY [Suspect]
     Indication: RASH
     Dosage: TEXT:12.5MG ONCE
     Route: 048
     Dates: start: 20100301, end: 20100301

REACTIONS (5)
  - ABNORMAL BEHAVIOUR [None]
  - FALL [None]
  - OVERDOSE [None]
  - PRODUCT QUALITY ISSUE [None]
  - WRONG DRUG ADMINISTERED [None]
